FAERS Safety Report 25887967 (Version 3)
Quarter: 2025Q4

REPORT INFORMATION
  Report Type: Spontaneous
  Country: AU (occurrence: AU)
  Receive Date: 20251007
  Receipt Date: 20251125
  Transmission Date: 20260118
  Serious: Yes (Disabling, Other)
  Sender: GLAXOSMITHKLINE
  Company Number: AU-GSKCCFAPAC-Case-02629309_AE-103649

PATIENT
  Sex: Male

DRUGS (1)
  1. NUCALA [Suspect]
     Active Substance: MEPOLIZUMAB
     Indication: Product used for unknown indication
     Dosage: UNK

REACTIONS (11)
  - Bone marrow necrosis [Unknown]
  - Necrosis [Unknown]
  - Gait inability [Unknown]
  - Hypersensitivity [Unknown]
  - Sinusitis [Unknown]
  - Arthralgia [Unknown]
  - General physical health deterioration [Unknown]
  - Immune system disorder [Unknown]
  - Weight decreased [Unknown]
  - Loss of personal independence in daily activities [Unknown]
  - Muscle atrophy [Unknown]
